FAERS Safety Report 4764774-2 (Version None)
Quarter: 2005Q3

REPORT INFORMATION
  Report Type: 
  Country: None (occurrence: None)
  Receive Date: 20050909
  Receipt Date: 20050831
  Transmission Date: 20060218
  Serious: Yes (Disabling, Other)
  Sender: FDA-Public Use
  Company Number: US-MERCK-0509USA00087

PATIENT
  Sex: Male

DRUGS (4)
  1. VIOXX [Suspect]
     Indication: BACK PAIN
     Route: 048
     Dates: start: 20000201
  2. VIOXX [Suspect]
     Route: 048
     Dates: start: 20021001, end: 20041001
  3. VIOXX [Suspect]
     Indication: INFLAMMATION
     Route: 048
     Dates: start: 20000201
  4. VIOXX [Suspect]
     Route: 048
     Dates: start: 20021001, end: 20041001

REACTIONS (1)
  - MYOCARDIAL INFARCTION [None]
